FAERS Safety Report 6596332-1 (Version None)
Quarter: 2010Q1

REPORT INFORMATION
  Report Type: 
  Country: None (occurrence: None)
  Receive Date: 20100223
  Receipt Date: 20100212
  Transmission Date: 20100710
  Serious: Yes (Other)
  Sender: FDA-Public Use
  Company Number: PHHY2009CN54912

PATIENT
  Age: 32 Year
  Sex: Male

DRUGS (2)
  1. LDT600 [Suspect]
     Indication: HEPATITIS B
     Dosage: 600 MG, QD
     Dates: start: 20071101, end: 20080501
  2. PEGASYS [Suspect]
     Indication: HEPATITIS B
     Dosage: 180 UG PER WEEK
     Dates: start: 20070201

REACTIONS (7)
  - ASTHENIA [None]
  - BLOOD CREATINE PHOSPHOKINASE INCREASED [None]
  - HYPOAESTHESIA [None]
  - MOVEMENT DISORDER [None]
  - MYALGIA [None]
  - NERVE ROOT INJURY [None]
  - NEUROPATHY PERIPHERAL [None]
